FAERS Safety Report 8124057-X (Version None)
Quarter: 2012Q1

REPORT INFORMATION
  Report Type: 
  Country: None (occurrence: None)
  Receive Date: 20120209
  Receipt Date: 20120206
  Transmission Date: 20120608
  Serious: No
  Sender: FDA-Public Use
  Company Number: US-PFIZER INC-2012032307

PATIENT
  Sex: Female
  Weight: 54.875 kg

DRUGS (10)
  1. ACETYLSALICYLIC ACID [Concomitant]
     Dosage: UNK
  2. SIMVASTATIN/NIACIN [Concomitant]
     Dosage: UNK
  3. ARMODAFINIL [Concomitant]
     Dosage: UNK
  4. CALCIUM [Concomitant]
     Dosage: UNK
  5. EFFEXOR XR [Suspect]
     Dosage: 75 MG, 1X/DAY
     Route: 048
     Dates: start: 20110101, end: 20120101
  6. BACLOFEN [Concomitant]
     Dosage: UNK
  7. POTASSIUM [Concomitant]
     Dosage: UNK
  8. GABAPENTIN [Concomitant]
     Dosage: UNK
  9. LYRICA [Suspect]
     Indication: PAIN
     Dosage: 100 MG, 3X/DAY
     Route: 048
     Dates: start: 20110101, end: 20120202
  10. MULTI-VITAMINS [Concomitant]
     Dosage: UNK

REACTIONS (2)
  - FATIGUE [None]
  - DIZZINESS [None]
